FAERS Safety Report 7767124-2 (Version None)
Quarter: 2011Q3

REPORT INFORMATION
  Report Type: 
  Country: None (occurrence: None)
  Receive Date: 20110922
  Receipt Date: 20100830
  Transmission Date: 20111222
  Serious: No
  Sender: FDA-Public Use
  Company Number: US-ASTRAZENECA-2008UW04306

PATIENT
  Age: 31 Year
  Sex: Female
  Weight: 92.1 kg

DRUGS (12)
  1. NAVANE [Concomitant]
     Dates: start: 20080101
  2. RISPERDAL [Concomitant]
     Indication: BIPOLAR DISORDER
  3. SEROQUEL [Suspect]
     Indication: DEPRESSION
     Dosage: 50MG - 200 MG
     Route: 048
     Dates: start: 19970501, end: 20070801
  4. SEROQUEL [Suspect]
     Indication: SCHIZOPHRENIA
     Dosage: 50MG - 200 MG
     Route: 048
     Dates: start: 19970501, end: 20070801
  5. TRIAVIL [Concomitant]
     Dates: start: 19900101
  6. STELAZINE [Concomitant]
     Dates: start: 20090101
  7. GEODON [Concomitant]
     Dates: start: 20090101
  8. SEROQUEL [Suspect]
     Indication: ANXIETY
     Dosage: 50MG - 200 MG
     Route: 048
     Dates: start: 19970501, end: 20070801
  9. ABILIFY [Concomitant]
     Dates: start: 20090101
  10. SEROQUEL [Suspect]
     Indication: BIPOLAR DISORDER
     Dosage: 50MG - 200 MG
     Route: 048
     Dates: start: 19970501, end: 20070801
  11. TRILAFON [Concomitant]
     Dates: start: 19900101
  12. ZYPREXA [Concomitant]
     Indication: SCHIZOPHRENIA
     Dates: start: 19900101

REACTIONS (4)
  - TYPE 2 DIABETES MELLITUS [None]
  - DIABETES MELLITUS [None]
  - DIABETIC COMPLICATION [None]
  - ROAD TRAFFIC ACCIDENT [None]
